FAERS Safety Report 10773123 (Version 1)
Quarter: 2015Q1

REPORT INFORMATION
  Report Type: Other
  Country: US (occurrence: US)
  Receive Date: 20150207
  Receipt Date: 20150207
  Transmission Date: 20150721
  Serious: No
  Sender: FDA-Public Use
  Company Number: US-ACORDA-ACO_106712_2014

PATIENT
  Sex: Female
  Weight: 83.45 kg

DRUGS (1)
  1. AMPYRA [Suspect]
     Active Substance: DALFAMPRIDINE
     Indication: RHEUMATOID ARTHRITIS
     Dosage: 10 MG, Q 12 HRS
     Route: 048

REACTIONS (4)
  - Pneumonia [Unknown]
  - Depression [Unknown]
  - Peripheral swelling [Unknown]
  - Off label use [None]

NARRATIVE: CASE EVENT DATE: 2014
